FAERS Safety Report 6700699-0 (Version None)
Quarter: 2010Q2

REPORT INFORMATION
  Report Type: 
  Country: None (occurrence: None)
  Receive Date: 20100426
  Receipt Date: 20100323
  Transmission Date: 20101027
  Serious: Yes (Life-Threatening, Hospitalization)
  Sender: FDA-Public Use
  Company Number: CTI_01137_2010

PATIENT
  Sex: Male

DRUGS (5)
  1. SPECTRACEF [Suspect]
     Indication: INFECTION
     Dosage: 81 MG ORAL
     Route: 048
     Dates: start: 20090507, end: 20090509
  2. SPECTRACEF [Suspect]
     Indication: OFF LABEL USE
     Dosage: 81 MG ORAL
     Route: 048
     Dates: start: 20090507, end: 20090509
  3. WIDECILLIN (WIDECILLIN (AMOXICILLIN HYDRATE) ) (NOT SPECIFIED) [Suspect]
     Indication: PHARYNGITIS
     Dosage: 450 MG QD ORAL
     Route: 048
     Dates: start: 20090506, end: 20090507
  4. ASPIRIN [Concomitant]
  5. ACETAMINOPHEN [Concomitant]

REACTIONS (6)
  - DRUG RASH WITH EOSINOPHILIA AND SYSTEMIC SYMPTOMS [None]
  - GENERAL PHYSICAL HEALTH DETERIORATION [None]
  - GENERALISED OEDEMA [None]
  - HEPATIC FUNCTION ABNORMAL [None]
  - LYMPHOCYTE STIMULATION TEST POSITIVE [None]
  - PYREXIA [None]
